FAERS Safety Report 9381639 (Version 1)
Quarter: 2013Q3

REPORT INFORMATION
  Report Type: Spontaneous
  Country: FR (occurrence: FR)
  Receive Date: 20130703
  Receipt Date: 20130703
  Transmission Date: 20140515
  Serious: Yes (Death, Hospitalization)
  Sender: FDA-Public Use
  Company Number: FR-PFIZER INC-2013195916

PATIENT
  Age: 77 Year
  Sex: Male

DRUGS (7)
  1. CORDARONE [Suspect]
     Dosage: 200 MG DAILY
     Route: 048
     Dates: start: 20130102, end: 20130207
  2. AUGMENTIN [Suspect]
     Dosage: UNK
     Route: 042
     Dates: start: 20130103, end: 20130112
  3. CLAVENTIN [Suspect]
     Dosage: UNK
     Route: 042
     Dates: start: 20130116, end: 20130119
  4. CLAVENTIN [Suspect]
     Dosage: UNK
     Route: 042
     Dates: start: 20130210, end: 20130210
  5. CLAVENTIN [Suspect]
     Dosage: UNK
     Route: 042
     Dates: start: 20130211, end: 20130211
  6. AMBISOME [Concomitant]
     Dosage: UNK
     Dates: start: 20130112, end: 20130201
  7. POSACONAZOLE [Concomitant]
     Dosage: UNK

REACTIONS (3)
  - Infection [Fatal]
  - Lactic acidosis [Fatal]
  - Toxic skin eruption [Recovering/Resolving]
